FAERS Safety Report 9446153 (Version 1)
Quarter: 2013Q3

REPORT INFORMATION
  Report Type: Spontaneous
  Country: US (occurrence: US)
  Receive Date: 20130807
  Receipt Date: 20130807
  Transmission Date: 20140515
  Serious: Yes (Other)
  Sender: FDA-Public Use
  Company Number: US-PFIZER INC-2013228975

PATIENT
  Sex: Male

DRUGS (3)
  1. CELEBREX [Suspect]
     Dosage: UNK
  2. CYMBALTA [Concomitant]
     Indication: PAIN
     Dosage: UNK
  3. PERCOCET [Concomitant]
     Dosage: UNK

REACTIONS (11)
  - Convulsion [Unknown]
  - Bone disorder [Unknown]
  - Arthritis [Unknown]
  - Spondylitis [Unknown]
  - Osteoarthritis [Unknown]
  - Joint injury [Unknown]
  - Depression [Unknown]
  - Irritable bowel syndrome [Unknown]
  - Pharyngeal disorder [Unknown]
  - Gastrooesophageal reflux disease [Unknown]
  - Intervertebral disc protrusion [Unknown]
